FAERS Safety Report 9813216 (Version 2)
Quarter: 2014Q1

REPORT INFORMATION
  Report Type: Spontaneous
  Country: GB (occurrence: GB)
  Receive Date: 20140113
  Receipt Date: 20140113
  Transmission Date: 20141002
  Serious: Yes (Other)
  Sender: FDA-Public Use
  Company Number: GB-UCBSA-100684

PATIENT
  Sex: Female

DRUGS (2)
  1. CIMZIA [Suspect]
     Indication: RHEUMATOID ARTHRITIS
     Dosage: 200MG EVERY TWO WEEKS
     Route: 058
     Dates: start: 201209
  2. METHOTREXATE [Concomitant]
     Dosage: 25 MG WEEKLY

REACTIONS (1)
  - Pneumonia [Unknown]
